FAERS Safety Report 5664678-7 (Version None)
Quarter: 2008Q1

REPORT INFORMATION
  Report Type: 
  Country: None (occurrence: None)
  Receive Date: 20080314
  Receipt Date: 20080311
  Transmission Date: 20080703
  Serious: Yes (Other)
  Sender: FDA-Public Use
  Company Number: US-ASTRAZENECA-2008UW04912

PATIENT

DRUGS (1)
  1. SYMBICORT [Suspect]
     Dosage: 160/4.5 MCG
     Route: 055

REACTIONS (1)
  - SYNCOPE [None]
